FAERS Safety Report 5645380-4 (Version None)
Quarter: 2008Q1

REPORT INFORMATION
  Report Type: 
  Country: None (occurrence: None)
  Receive Date: 20080229
  Receipt Date: 20080220
  Transmission Date: 20080703
  Serious: Yes (Hospitalization)
  Sender: FDA-Public Use
  Company Number: US-MERCK-0706USA03530

PATIENT
  Age: 78 Year
  Sex: Female
  Weight: 53 kg

DRUGS (3)
  1. FOSAMAX [Suspect]
     Indication: OSTEOPENIA
     Route: 048
     Dates: start: 19980101, end: 20030101
  2. TARKA [Concomitant]
     Indication: BLOOD CHOLESTEROL INCREASED
     Route: 065
     Dates: start: 19940101
  3. LIPITOR [Concomitant]
     Indication: HYPERTENSION
     Route: 065
     Dates: start: 19810101

REACTIONS (14)
  - ANKLE FRACTURE [None]
  - AXILLARY MASS [None]
  - BASAL CELL CARCINOMA [None]
  - BREAST CANCER [None]
  - BREAST CANCER RECURRENT [None]
  - BREAST NECROSIS [None]
  - DIVERTICULUM [None]
  - DYSPHAGIA [None]
  - FIBROCYSTIC BREAST DISEASE [None]
  - JOINT INJURY [None]
  - LYMPHADENOPATHY [None]
  - PAIN IN JAW [None]
  - ROAD TRAFFIC ACCIDENT [None]
  - TOOTH LOSS [None]
